FAERS Safety Report 10568053 (Version 1)
Quarter: 2014Q4

REPORT INFORMATION
  Report Type: Spontaneous
  Country: US (occurrence: None)
  Receive Date: 20141105
  Receipt Date: 20141105
  Transmission Date: 20150529
  Serious: Yes (Hospitalization)
  Sender: FDA-Public Use
  Company Number: None

PATIENT
  Age: 63 Year
  Sex: Male
  Weight: 107.5 kg

DRUGS (6)
  1. BEVACIZUMAB (RHUMAB VEGF) [Suspect]
     Active Substance: BEVACIZUMAB
  2. CARBOPLATIN. [Suspect]
     Active Substance: CARBOPLATIN
  3. METRONIDAZOLE. [Concomitant]
     Active Substance: METRONIDAZOLE
  4. TAXOL [Suspect]
     Active Substance: PACLITAXEL
  5. TAMSULOSIN [Concomitant]
     Active Substance: TAMSULOSIN
  6. CHANTIX [Concomitant]
     Active Substance: VARENICLINE TARTRATE

REACTIONS (4)
  - Neutrophil count decreased [None]
  - Diarrhoea [None]
  - Fatigue [None]
  - Dehydration [None]

NARRATIVE: CASE EVENT DATE: 20141028
